FAERS Safety Report 8281123-6 (Version None)
Quarter: 2012Q2

REPORT INFORMATION
  Report Type: 
  Country: None (occurrence: None)
  Receive Date: 20120413
  Receipt Date: 20120405
  Transmission Date: 20120825
  Serious: Yes (Life-Threatening, Hospitalization)
  Sender: FDA-Public Use
  Company Number: FR-BIOGENIDEC-2012BI012264

PATIENT
  Age: 45 Year
  Sex: Male

DRUGS (8)
  1. DILTIAZEM HCL [Concomitant]
     Indication: HYPERTENSION
  2. TYSABRI [Suspect]
     Indication: MULTIPLE SCLEROSIS
     Route: 042
     Dates: start: 20080602, end: 20110817
  3. ENOXAPARIN SODIUM [Concomitant]
     Indication: THROMBOSIS PROPHYLAXIS
  4. BACLOFEN [Concomitant]
     Indication: MUSCLE RELAXANT THERAPY
  5. ATORVASTATIN CALCIUM [Concomitant]
     Indication: HYPERCHOLESTEROLAEMIA
  6. ALPRAZOLAM [Concomitant]
     Indication: ANXIETY
  7. CLOPIDOGREL [Concomitant]
     Indication: ANTICOAGULANT THERAPY
  8. POLYETHYLENE GLYCOL [Concomitant]
     Indication: LAXATIVE SUPPORTIVE CARE

REACTIONS (1)
  - ACUTE RESPIRATORY FAILURE [None]
